FAERS Safety Report 18923021 (Version 1)
Quarter: 2021Q1

REPORT INFORMATION
  Report Type: Spontaneous
  Country: US (occurrence: US)
  Receive Date: 20210222
  Receipt Date: 20210222
  Transmission Date: 20210420
  Serious: Yes (Disabling)
  Sender: FDA-Public Use
  Company Number: None

PATIENT
  Age: 55 Year
  Sex: Female
  Weight: 62.1 kg

DRUGS (2)
  1. SERTRALINE HCL TAB 50MG [Suspect]
     Active Substance: SERTRALINE HYDROCHLORIDE
     Indication: DEPRESSION
     Dosage: ?          QUANTITY:1 TABLET(S);?
     Route: 048
     Dates: start: 20210131, end: 20210217
  2. CENTRUM MULTIVITAMIN [Concomitant]

REACTIONS (5)
  - Therapy non-responder [None]
  - Insomnia [None]
  - Condition aggravated [None]
  - Mood altered [None]
  - Self-injurious ideation [None]

NARRATIVE: CASE EVENT DATE: 20210215
